FAERS Safety Report 6209189-5 (Version None)
Quarter: 2009Q2

REPORT INFORMATION
  Report Type: 
  Country: None (occurrence: None)
  Receive Date: 20090529
  Receipt Date: 20090519
  Transmission Date: 20091009
  Serious: No
  Sender: FDA-Public Use
  Company Number: US-ROCHE-626614

PATIENT
  Sex: Male
  Weight: 90.7 kg

DRUGS (3)
  1. PEGASYS [Suspect]
     Indication: HEPATITIS C
     Route: 058
     Dates: start: 20080701
  2. COPEGUS [Suspect]
     Indication: HEPATITIS C
     Route: 048
     Dates: start: 20080701
  3. NEXIUM [Concomitant]
     Route: 048

REACTIONS (2)
  - CONVULSION [None]
  - SYNCOPE [None]
